FAERS Safety Report 8965433 (Version 1)
Quarter: 2012Q4

REPORT INFORMATION
  Report Type: 
  Country: CN (occurrence: CN)
  Receive Date: 20121213
  Receipt Date: 20121213
  Transmission Date: 20130627
  Serious: Yes (Hospitalization, Other)
  Sender: FDA-Public Use
  Company Number: PHHY2012CN108466

PATIENT
  Age: 79 Year
  Sex: Male
  Weight: 80 kg

DRUGS (4)
  1. VOLTAREN [Suspect]
     Indication: INFLAMMATION
     Dosage: 75 mg, QD
     Route: 048
     Dates: start: 20100205, end: 20100222
  2. VOLTAREN [Suspect]
     Indication: PAIN
  3. DICLOFENAC [Concomitant]
     Indication: JOINT SWELLING
     Dosage: 75 mg, QD
  4. DICLOFENAC [Concomitant]
     Indication: ARTHRALGIA

REACTIONS (2)
  - Joint swelling [Recovering/Resolving]
  - Arthralgia [Recovering/Resolving]
